FAERS Safety Report 6072890-0 (Version None)
Quarter: 2009Q1

REPORT INFORMATION
  Report Type: 
  Country: None (occurrence: None)
  Receive Date: 20090205
  Receipt Date: 20090126
  Transmission Date: 20090719
  Serious: Yes (Hospitalization, Other)
  Sender: FDA-Public Use
  Company Number: 09P-082-0496378-00

PATIENT
  Age: 13 Month
  Sex: Male
  Weight: 5 kg

DRUGS (8)
  1. SYNAGIS [Suspect]
     Indication: ANTIVIRAL PROPHYLAXIS
     Dosage: FIRST DOSE (1ST DOSE); 2ND DOSE (2ND DOSE); 3RD DOSE (3RD DOSE); 4TH DOSE (4TH DOSE)
     Dates: start: 20080925, end: 20080925
  2. SYNAGIS [Suspect]
     Indication: ANTIVIRAL PROPHYLAXIS
     Dosage: FIRST DOSE (1ST DOSE); 2ND DOSE (2ND DOSE); 3RD DOSE (3RD DOSE); 4TH DOSE (4TH DOSE)
     Dates: start: 20081023, end: 20081023
  3. SYNAGIS [Suspect]
     Indication: ANTIVIRAL PROPHYLAXIS
     Dosage: FIRST DOSE (1ST DOSE); 2ND DOSE (2ND DOSE); 3RD DOSE (3RD DOSE); 4TH DOSE (4TH DOSE)
     Dates: start: 20081028, end: 20081028
  4. SYNAGIS [Suspect]
     Indication: ANTIVIRAL PROPHYLAXIS
     Dosage: FIRST DOSE (1ST DOSE); 2ND DOSE (2ND DOSE); 3RD DOSE (3RD DOSE); 4TH DOSE (4TH DOSE)
     Dates: start: 20081216, end: 20081216
  5. SPIRONOLACTONE [Concomitant]
  6. SILDENAFIL CITRATE [Concomitant]
  7. FUROSEMIDE (FUROSEMIDE) [Concomitant]
  8. PREDNISONE TAB [Concomitant]

REACTIONS (3)
  - BRONCHIOLITIS [None]
  - OXYGEN SATURATION DECREASED [None]
  - RESPIRATORY SYNCYTIAL VIRUS INFECTION [None]
